FAERS Safety Report 22205701 (Version 1)
Quarter: 2023Q2

REPORT INFORMATION
  Report Type: Spontaneous
  Country: US (occurrence: None)
  Receive Date: 20230413
  Receipt Date: 20230413
  Transmission Date: 20230722
  Serious: No
  Sender: FDA-Public Use
  Company Number: 2023A079965

PATIENT
  Age: 7626 Day
  Sex: Female
  Weight: 83.9 kg

DRUGS (1)
  1. BYDUREON BCISE [Suspect]
     Active Substance: EXENATIDE
     Indication: Glucose tolerance impaired
     Route: 058
     Dates: start: 2022

REACTIONS (6)
  - Injection site pain [Recovering/Resolving]
  - Injection site bruising [Unknown]
  - Glucose tolerance impaired [Unknown]
  - Wrong technique in device usage process [Unknown]
  - Device use issue [Unknown]
  - Incorrect dose administered by device [Unknown]

NARRATIVE: CASE EVENT DATE: 20230324
